FAERS Safety Report 5812438-6 (Version None)
Quarter: 2008Q3

REPORT INFORMATION
  Report Type: 
  Country: None (occurrence: None)
  Receive Date: 20080711
  Receipt Date: 20080708
  Transmission Date: 20090109
  Serious: Yes (Death, Hospitalization, Other)
  Sender: FDA-Public Use
  Company Number: 100#08#2008-03365

PATIENT
  Sex: Female

DRUGS (10)
  1. AZITHROMYCIN [Suspect]
     Indication: ATRIAL FIBRILLATION
     Dosage: 250 MG ONCE DAILY
     Dates: start: 19980331
  2. AZITHROMYCIN [Suspect]
     Indication: UPPER RESPIRATORY TRACT INFECTION
     Dosage: 250 MG ONCE DAILY
     Dates: start: 19980331
  3. AMIODARONE HCL [Suspect]
     Indication: ATRIAL FLUTTER
     Dosage: 200 MG ONCE DAILY
     Dates: start: 19980301
  4. NICOUMALONE (NICOUMALONE) [Suspect]
     Indication: PROTHROMBIN TIME
     Dosage: 2-3 MG ON ALTERNATE DAYS DAYS
  5. DIGOXIN (TABLETS) (DIGOXIN) [Concomitant]
  6. FUROSEMIDE [Concomitant]
  7. SPIRONOLACTONE [Concomitant]
  8. ALPRAZOLAM [Concomitant]
  9. RANITIDINE [Concomitant]
  10. DERIPHYLLIN (DERIPHYLLIN) [Concomitant]

REACTIONS (23)
  - APHONIA [None]
  - ATRIAL FIBRILLATION [None]
  - BLOOD SODIUM DECREASED [None]
  - CARDIAC ARREST [None]
  - CARDIAC FAILURE CONGESTIVE [None]
  - CARDIOMEGALY [None]
  - CYANOSIS [None]
  - DRUG INTERACTION [None]
  - DYSPHONIA [None]
  - DYSPNOEA [None]
  - HAEMOPTYSIS [None]
  - HEART RATE INCREASED [None]
  - HEPATOMEGALY [None]
  - INFUSION SITE HAEMORRHAGE [None]
  - JUGULAR VEIN DISTENSION [None]
  - LYMPHOCYTE PERCENTAGE DECREASED [None]
  - NEUTROPHIL PERCENTAGE INCREASED [None]
  - OEDEMA PERIPHERAL [None]
  - PROTHROMBIN TIME PROLONGED [None]
  - PULSE ABSENT [None]
  - RESPIRATORY TRACT HAEMORRHAGE [None]
  - STRIDOR [None]
  - UPPER RESPIRATORY TRACT INFECTION [None]
